FAERS Safety Report 10896097 (Version 1)
Quarter: 2015Q1

REPORT INFORMATION
  Report Type: Spontaneous
  Country: BR (occurrence: BR)
  Receive Date: 20150309
  Receipt Date: 20150309
  Transmission Date: 20150721
  Serious: Yes (Other)
  Sender: FDA-Public Use
  Company Number: BR-ROCHE-1548540

PATIENT
  Age: 14 Year
  Sex: Male

DRUGS (3)
  1. XOLAIR [Suspect]
     Active Substance: OMALIZUMAB
     Indication: PRODUCT USED FOR UNKNOWN INDICATION
     Route: 065
     Dates: start: 201304
  2. XOLAIR [Suspect]
     Active Substance: OMALIZUMAB
     Route: 065
     Dates: start: 201307
  3. XOLAIR [Suspect]
     Active Substance: OMALIZUMAB
     Route: 065
     Dates: start: 201312

REACTIONS (6)
  - Pneumothorax [Unknown]
  - Bronchiectasis [Unknown]
  - Asthma [Unknown]
  - Conjunctivitis allergic [Unknown]
  - Blood immunoglobulin E abnormal [Unknown]
  - House dust allergy [Unknown]

NARRATIVE: CASE EVENT DATE: 20130503
